FAERS Safety Report 9444521 (Version 2)
Quarter: 2013Q3

REPORT INFORMATION
  Report Type: Spontaneous
  Country: US (occurrence: US)
  Receive Date: 20130807
  Receipt Date: 20130912
  Transmission Date: 20140515
  Serious: No
  Sender: FDA-Public Use
  Company Number: US-PFIZER INC-2013227614

PATIENT
  Age: 82 Year
  Sex: Female

DRUGS (3)
  1. XELJANZ [Suspect]
     Indication: RHEUMATOID ARTHRITIS
     Dosage: 5 MG, BID
     Route: 048
     Dates: start: 20130502, end: 20130731
  2. SPIRIVA INHALER [Concomitant]
     Dosage: 18 UG, UNK
  3. PULMICORT FLEXHALER [Concomitant]
     Dosage: 180 UG, UNK

REACTIONS (4)
  - Drug ineffective [Unknown]
  - Respiratory tract congestion [Unknown]
  - Sinus congestion [Unknown]
  - Upper respiratory tract infection [Recovered/Resolved]
